FAERS Safety Report 7499405-4 (Version None)
Quarter: 2011Q2

REPORT INFORMATION
  Report Type: 
  Country: None (occurrence: None)
  Receive Date: 20110524
  Receipt Date: 20110510
  Transmission Date: 20111010
  Serious: Yes (Hospitalization)
  Sender: FDA-Public Use
  Company Number: PHHY2011FI29347

PATIENT
  Age: 79 Year
  Sex: Female

DRUGS (5)
  1. SINEMET [Suspect]
     Dosage: UNK UKN, UNK
  2. RAMIPRIL [Concomitant]
     Dosage: 1.25 MG, UNK
  3. SIMVASTATIN [Concomitant]
     Dosage: 20 MG, UNK
  4. STALEVO 100 [Suspect]
     Dosage: 300 MG, UNK
     Route: 048
  5. FURESIS [Concomitant]
     Dosage: 80 MG, UNK

REACTIONS (13)
  - UNRESPONSIVE TO STIMULI [None]
  - CONFUSIONAL STATE [None]
  - VOMITING [None]
  - HYPOTHERMIA [None]
  - HYPOTENSION [None]
  - DISORIENTATION [None]
  - HAEMOGLOBIN DECREASED [None]
  - TONGUE BITING [None]
  - ASPIRATION [None]
  - HYPOTONIA [None]
  - TONIC CONVULSION [None]
  - ACTIVITIES OF DAILY LIVING IMPAIRED [None]
  - DRUG ADMINISTRATION ERROR [None]
